FAERS Safety Report 10434248 (Version 1)
Quarter: 2014Q3

REPORT INFORMATION
  Report Type: Spontaneous
  Country: JP (occurrence: JP)
  Receive Date: 20140905
  Receipt Date: 20140905
  Transmission Date: 20150326
  Serious: Yes (Other)
  Sender: FDA-Public Use
  Company Number: PHHY2014JP107615

PATIENT
  Age: 10 Year
  Sex: Male

DRUGS (7)
  1. FLUDARABINE [Concomitant]
     Active Substance: FLUDARABINE PHOSPHATE
     Dosage: 30 MG/M2, FOR SIX CONSECUTIVE DAILY DOSES
  2. TACROLIMUS. [Suspect]
     Active Substance: TACROLIMUS
     Indication: IMMUNOSUPPRESSION
  3. CHEMOTHERAPEUTICS [Suspect]
     Active Substance: UNSPECIFIED INGREDIENT
     Indication: ACUTE LYMPHOCYTIC LEUKAEMIA
  4. MYCOPHENOLATE MOFETIL. [Suspect]
     Active Substance: MYCOPHENOLATE MOFETIL
     Indication: IMMUNOSUPPRESSION
  5. RADIATION THERAPY [Suspect]
     Active Substance: RADIATION THERAPY
     Dosage: 2 GY, DAILY
  6. METHOTREXATE [Suspect]
     Active Substance: METHOTREXATE
     Indication: IMMUNOSUPPRESSION
  7. MELPHALAN [Concomitant]
     Active Substance: MELPHALAN
     Dosage: 70 MG/M2, FOR TWO CONSECUTIVE DAILY DOSES

REACTIONS (10)
  - Dyspnoea [Recovered/Resolved]
  - Atelectasis [Recovered/Resolved]
  - Cough [Recovered/Resolved]
  - Lung hyperinflation [Recovered/Resolved]
  - Convulsion [Recovered/Resolved]
  - Inflammatory myofibroblastic tumour [Recovered/Resolved]
  - Graft versus host disease in gastrointestinal tract [Recovered/Resolved]
  - Graft versus host disease in skin [Recovered/Resolved]
  - Mass [Recovered/Resolved]
  - Tumour haemorrhage [Recovered/Resolved]
